FAERS Safety Report 15781133 (Version 7)
Quarter: 2020Q3

REPORT INFORMATION
  Report Type: Report from Study
  Country: CA (occurrence: CA)
  Receive Date: 20190102
  Receipt Date: 20200706
  Transmission Date: 20201102
  Serious: Yes (Other)
  Sender: FDA-Public Use
  Company Number: CA-SA-2018SA332882

PATIENT

DRUGS (3)
  1. VANDETANIB. [Suspect]
     Active Substance: VANDETANIB
     Dosage: 100 MG, QD
     Route: 048
     Dates: start: 20181129
  2. VANDETANIB. [Suspect]
     Active Substance: VANDETANIB
     Indication: MEDULLARY THYROID CANCER
     Dosage: 100 MG, QD
     Route: 048
     Dates: start: 20190507
  3. VANDETANIB. [Suspect]
     Active Substance: VANDETANIB
     Dosage: 200 MG, QD
     Route: 048
     Dates: start: 201812, end: 20190502

REACTIONS (21)
  - Bone pain [Not Recovered/Not Resolved]
  - Skin fissures [Not Recovered/Not Resolved]
  - Electrocardiogram QT prolonged [Not Recovered/Not Resolved]
  - Pain [Not Recovered/Not Resolved]
  - Skin burning sensation [Not Recovered/Not Resolved]
  - Skin haemorrhage [Not Recovered/Not Resolved]
  - Abdominal distension [Not Recovered/Not Resolved]
  - Sensory disturbance [Unknown]
  - Erythema [Unknown]
  - Oedema [Not Recovered/Not Resolved]
  - Rash pruritic [Not Recovered/Not Resolved]
  - Electrocardiogram QT shortened [Not Recovered/Not Resolved]
  - Ear discomfort [Unknown]
  - Abdominal pain [Not Recovered/Not Resolved]
  - Fatigue [Unknown]
  - Gingivitis [Recovered/Resolved with Sequelae]
  - Disease progression [Unknown]
  - Gait disturbance [Not Recovered/Not Resolved]
  - Toothache [Not Recovered/Not Resolved]
  - Oropharyngeal pain [Not Recovered/Not Resolved]
  - Skin exfoliation [Unknown]

NARRATIVE: CASE EVENT DATE: 201812
